FAERS Safety Report 24616343 (Version 3)
Quarter: 2025Q3

REPORT INFORMATION
  Report Type: Spontaneous
  Country: US (occurrence: US)
  Receive Date: 20241114
  Receipt Date: 20250810
  Transmission Date: 20251020
  Serious: No
  Sender: ALEXION PHARMACEUTICALS
  Company Number: US-AstraZeneca-CH-00746554AP

PATIENT
  Sex: Female

DRUGS (1)
  1. BYDUREON BCISE [Suspect]
     Active Substance: EXENATIDE

REACTIONS (5)
  - Injection site haemorrhage [Unknown]
  - Product dose omission in error [Unknown]
  - Blood glucose increased [Unknown]
  - Drug delivery system malfunction [Unknown]
  - Needle issue [Unknown]
